FAERS Safety Report 8171810-2 (Version None)
Quarter: 2012Q1

REPORT INFORMATION
  Report Type: 
  Country: None (occurrence: None)
  Receive Date: 20120228
  Receipt Date: 20120220
  Transmission Date: 20120608
  Serious: Yes (Hospitalization)
  Sender: FDA-Public Use
  Company Number: FR-VIIV HEALTHCARE LIMITED-B0782653A

PATIENT
  Sex: Male

DRUGS (3)
  1. ABACAVIR SULFATE/LAMIVUDINE [Suspect]
     Indication: HIV INFECTION
     Dosage: 1TAB PER DAY
     Route: 048
     Dates: start: 20071011
  2. PREZISTA [Suspect]
     Indication: HIV INFECTION
     Dosage: 2UNIT PER DAY
     Route: 048
     Dates: start: 20100224
  3. NORVIR [Suspect]
     Indication: HIV INFECTION
     Dosage: 100MG PER DAY
     Route: 048
     Dates: start: 20101014

REACTIONS (8)
  - DYSARTHRIA [None]
  - PANCREATITIS ACUTE [None]
  - DYSLIPIDAEMIA [None]
  - VERTIGO [None]
  - ISCHAEMIC STROKE [None]
  - PARAESTHESIA [None]
  - VIITH NERVE PARALYSIS [None]
  - HEADACHE [None]
